FAERS Safety Report 10267249 (Version 1)
Quarter: 2014Q2

REPORT INFORMATION
  Report Type: Spontaneous
  Country: CN (occurrence: CN)
  Receive Date: 20140630
  Receipt Date: 20140630
  Transmission Date: 20141212
  Serious: Yes (Death, Other)
  Sender: FDA-Public Use
  Company Number: CN-JNJFOC-20140613672

PATIENT
  Sex: 0

DRUGS (2)
  1. DOXORUBICIN HYDROCHLORIDE [Suspect]
     Indication: GASTROINTESTINAL STROMAL TUMOUR
     Dosage: 40-80 MG
     Route: 042
  2. IODIZED OIL [Suspect]
     Indication: GASTROINTESTINAL STROMAL TUMOUR
     Dosage: 5-20 ML
     Route: 065

REACTIONS (14)
  - Metastases to liver [Fatal]
  - Ascites [Unknown]
  - Haematochezia [Unknown]
  - Neutropenia [Unknown]
  - Anaemia [Unknown]
  - Thrombocytopenia [Unknown]
  - Liver function test abnormal [Unknown]
  - Pyrexia [Unknown]
  - Fatigue [Unknown]
  - Nausea [Unknown]
  - Diarrhoea [Unknown]
  - Abdominal pain [Unknown]
  - Off label use [Unknown]
  - Alanine aminotransferase increased [Unknown]
